FAERS Safety Report 7679479-8 (Version None)
Quarter: 2011Q3

REPORT INFORMATION
  Report Type: 
  Country: None (occurrence: None)
  Receive Date: 20110812
  Receipt Date: 20110812
  Transmission Date: 20111222
  Serious: Yes (Other)
  Sender: FDA-Public Use
  Company Number: None

PATIENT
  Age: 72 Year
  Sex: Male
  Weight: 89.357 kg

DRUGS (2)
  1. OMEPRAZOLE [Suspect]
     Indication: BARRETT'S OESOPHAGUS
     Dosage: 1 Q AM 30 MINUTES BEFORE MEAL
     Route: 048
     Dates: start: 20110714, end: 20110801
  2. NEXIUM [Concomitant]
     Indication: GASTROOESOPHAGEAL REFLUX DISEASE
     Dosage: 1
     Route: 048

REACTIONS (5)
  - PRURITUS [None]
  - CHEST DISCOMFORT [None]
  - DRUG INEFFECTIVE [None]
  - ERYTHEMA [None]
  - SKIN LESION [None]
